FAERS Safety Report 4840856-1 (Version None)
Quarter: 2005Q4

REPORT INFORMATION
  Report Type: 
  Country: None (occurrence: None)
  Receive Date: 20051130
  Receipt Date: 20050922
  Transmission Date: 20060501
  Serious: No
  Sender: FDA-Public Use
  Company Number: US-BRISTOL-MYERS SQUIBB COMPANY-13118997

PATIENT
  Age: 45 Year
  Sex: Male
  Weight: 97 kg

DRUGS (2)
  1. AVALIDE [Suspect]
     Indication: HYPERTENSION
     Dates: start: 20050101
  2. ADVAIR DISKUS 100/50 [Concomitant]

REACTIONS (4)
  - HEADACHE [None]
  - MUSCLE SPASMS [None]
  - MYALGIA [None]
  - SINUSITIS [None]
